FAERS Safety Report 6612789-1 (Version None)
Quarter: 2010Q1

REPORT INFORMATION
  Report Type: 
  Country: None (occurrence: None)
  Receive Date: 20100303
  Receipt Date: 20100217
  Transmission Date: 20100710
  Serious: Yes (Other)
  Sender: FDA-Public Use
  Company Number: US-ELI_LILLY_AND_COMPANY-US201002005604

PATIENT
  Sex: Female

DRUGS (4)
  1. EFFIENT [Suspect]
     Indication: ACUTE CORONARY SYNDROME
     Dosage: 60 MG, UNK
  2. INTEGRILIN [Concomitant]
  3. ASPIRIN [Concomitant]
  4. PLAVIX [Concomitant]

REACTIONS (2)
  - COLON CANCER [None]
  - GASTROINTESTINAL HAEMORRHAGE [None]
